FAERS Safety Report 10058083 (Version 2)
Quarter: 2014Q2

REPORT INFORMATION
  Report Type: Spontaneous
  Country: DE (occurrence: None)
  Receive Date: 20140402
  Receipt Date: 20140616
  Transmission Date: 20141212
  Serious: Yes (Other)
  Sender: FDA-Public Use
  Company Number: 2014-19266

PATIENT
  Age: 67 Year
  Sex: Male

DRUGS (2)
  1. EYLEA (ALFIBERCEPT) INJECTION [Suspect]
     Indication: AGE-RELATED MACULAR DEGENERATION
     Dosage: EVERY 3 MONTHS.
     Route: 031
     Dates: start: 201307
  2. IODINE (IODINE) [Suspect]
     Indication: PRODUCT USED FOR UNKNOWN INDICATION

REACTIONS (6)
  - Eye allergy [None]
  - Foreign body sensation in eyes [None]
  - Ocular hyperaemia [None]
  - Eye pain [None]
  - Visual impairment [None]
  - Off label use [None]
